FAERS Safety Report 9343175 (Version 1)
Quarter: 2013Q2

REPORT INFORMATION
  Report Type: Spontaneous
  Country: US (occurrence: US)
  Receive Date: 20130611
  Receipt Date: 20130611
  Transmission Date: 20140414
  Serious: No
  Sender: FDA-Public Use
  Company Number: US-009507513-1306USA003595

PATIENT
  Sex: Female

DRUGS (1)
  1. AZASITE [Suspect]
     Dosage: 2 GTT, QPM. ONE DROP IN THE BOTH EYES AT NIGHT
     Route: 047
     Dates: start: 20130518

REACTIONS (2)
  - Incorrect storage of drug [Unknown]
  - No adverse event [Unknown]
